FAERS Safety Report 5261893-1 (Version None)
Quarter: 2007Q1

REPORT INFORMATION
  Report Type: 
  Country: None (occurrence: None)
  Receive Date: 20070310
  Receipt Date: 20070228
  Transmission Date: 20070707
  Serious: Yes (Death, Other)
  Sender: FDA-Public Use
  Company Number: 2006UW00985

PATIENT
  Age: 26184 Day
  Sex: Male
  Weight: 93.2 kg

DRUGS (3)
  1. SEROQUEL [Suspect]
     Indication: HALLUCINATION
     Dosage: 50 MG - 100 MG
     Route: 048
     Dates: start: 20030501, end: 20030901
  2. RISPERDAL [Suspect]
  3. ZYPREXA [Suspect]

REACTIONS (3)
  - DEATH [None]
  - DIABETES MELLITUS [None]
  - NEUROLEPTIC MALIGNANT SYNDROME [None]
